FAERS Safety Report 15661128 (Version 1)
Quarter: 2018Q4

REPORT INFORMATION
  Report Type: Spontaneous
  Country: CA (occurrence: CA)
  Receive Date: 20181127
  Receipt Date: 20181127
  Transmission Date: 20190205
  Serious: Yes (Other)
  Sender: FDA-Public Use
  Company Number: CA-PFIZER INC-2018484665

PATIENT
  Age: 63 Year
  Sex: Female

DRUGS (13)
  1. PLAQUENIL [Concomitant]
     Active Substance: HYDROXYCHLOROQUINE SULFATE
     Route: 065
  2. METHOTREXATE SODIUM. [Suspect]
     Active Substance: METHOTREXATE SODIUM
     Dosage: 25 MG, QWK
     Route: 058
  3. HYDROXYCHLOROQUINE [Concomitant]
     Active Substance: HYDROXYCHLOROQUINE
     Dosage: UNK
  4. LEFLUNOMIDE. [Suspect]
     Active Substance: LEFLUNOMIDE
     Indication: RHEUMATOID ARTHRITIS
     Dosage: 20 MG, QD
     Route: 065
  5. ENBREL [Suspect]
     Active Substance: ETANERCEPT
     Dosage: 50 MG, QWK
     Route: 058
  6. ORENCIA [Concomitant]
     Active Substance: ABATACEPT
     Route: 065
  7. SULFASALAZINE. [Suspect]
     Active Substance: SULFASALAZINE
     Dosage: 500 MG, QD
     Route: 048
  8. HUMIRA [Suspect]
     Active Substance: ADALIMUMAB
     Indication: RHEUMATOID ARTHRITIS
     Dosage: 40 MG, Q2WK
     Route: 065
  9. RITUXAN [Suspect]
     Active Substance: RITUXIMAB
     Indication: RHEUMATOID ARTHRITIS
     Dosage: UNK
     Route: 065
  10. XELJANZ [Concomitant]
     Active Substance: TOFACITINIB CITRATE
     Route: 065
  11. ARAVA [Concomitant]
     Active Substance: LEFLUNOMIDE
  12. CIMZIA [Concomitant]
     Active Substance: CERTOLIZUMAB PEGOL
  13. RISEDRONATE [Concomitant]
     Active Substance: RISEDRONATE SODIUM

REACTIONS (8)
  - Pain in extremity [Unknown]
  - Back pain [Unknown]
  - C-reactive protein abnormal [Unknown]
  - Arthralgia [Unknown]
  - Joint swelling [Unknown]
  - Alopecia [Unknown]
  - Drug intolerance [Unknown]
  - Treatment failure [Unknown]
